FAERS Safety Report 9279368 (Version 1)
Quarter: 2013Q2

REPORT INFORMATION
  Report Type: Spontaneous
  Country: DK (occurrence: CH)
  Receive Date: 20130508
  Receipt Date: 20130508
  Transmission Date: 20140414
  Serious: Yes (Death)
  Sender: FDA-Public Use
  Company Number: CH-FRI-1000044998

PATIENT
  Sex: Male

DRUGS (4)
  1. CITALOPRAM [Suspect]
     Dosage: 20 MG
  2. METHADONE [Suspect]
     Dosage: 60 MG
  3. DALMADORM [Concomitant]
     Dosage: 30 MG
  4. BUSCOPAN [Concomitant]
     Dosage: 20 MG

REACTIONS (1)
  - Sudden death [Fatal]
